FAERS Safety Report 16914408 (Version 1)
Quarter: 2019Q4

REPORT INFORMATION
  Report Type: Spontaneous
  Country: FR (occurrence: FR)
  Receive Date: 20191014
  Receipt Date: 20191014
  Transmission Date: 20200122
  Serious: Yes (Other)
  Sender: FDA-Public Use
  Company Number: FR-SA-2019SA277537

PATIENT
  Age: 61 Year
  Sex: Male
  Weight: 81.6 kg

DRUGS (3)
  1. LOVENOX [Suspect]
     Active Substance: ENOXAPARIN SODIUM
     Indication: PROPHYLAXIS
     Dosage: UNK UNK, UNK
     Route: 058
     Dates: start: 20190810
  2. AMOXICILLIN SODIUM [Suspect]
     Active Substance: AMOXICILLIN SODIUM
     Indication: ENDOCARDITIS
     Dosage: 12 G, QD
     Route: 042
     Dates: start: 20190807, end: 20190829
  3. OXAZEPAM. [Suspect]
     Active Substance: OXAZEPAM
     Indication: ANXIETY
     Dosage: UNK UNK, UNK
     Route: 048
     Dates: start: 20190814

REACTIONS (1)
  - Leukopenia [Not Recovered/Not Resolved]

NARRATIVE: CASE EVENT DATE: 20190815
